FAERS Safety Report 16966022 (Version 1)
Quarter: 2019Q4

REPORT INFORMATION
  Report Type: Spontaneous
  Country: US (occurrence: US)
  Receive Date: 20191028
  Receipt Date: 20191028
  Transmission Date: 20200122
  Serious: No
  Sender: FDA-Public Use
  Company Number: US-PFIZER INC-2019461072

PATIENT
  Age: 29 Year
  Sex: Male

DRUGS (1)
  1. SOLU-CORTEF [Suspect]
     Active Substance: HYDROCORTISONE SODIUM SUCCINATE
     Dosage: 100 MG/ML, UNK

REACTIONS (3)
  - Drug ineffective [Unknown]
  - Product counterfeit [Unknown]
  - Counterfeit product administered [Unknown]
